FAERS Safety Report 5303284-0 (Version None)
Quarter: 2007Q2

REPORT INFORMATION
  Report Type: 
  Country: None (occurrence: None)
  Receive Date: 20070420
  Receipt Date: 20070419
  Transmission Date: 20071010
  Serious: Yes (Other)
  Sender: FDA-Public Use
  Company Number: BR-GLAXOSMITHKLINE-A0647907A

PATIENT
  Age: 35 Year
  Sex: Female
  Weight: 63.5 kg

DRUGS (2)
  1. SERETIDE [Suspect]
     Indication: ASTHMA
     Route: 065
     Dates: start: 20060901
  2. DEXTRAN 70 + HYPROMELLOSE [Concomitant]
     Dates: start: 20061117, end: 20061124

REACTIONS (2)
  - APNOEA [None]
  - XEROPHTHALMIA [None]
